FAERS Safety Report 9257515 (Version 1)
Quarter: 2013Q1

REPORT INFORMATION
  Report Type: Spontaneous
  Country: US (occurrence: None)
  Receive Date: 20121212
  Receipt Date: 20121212
  Transmission Date: 20140127
  Serious: No
  Sender: FDA-Public Use
  Company Number: 1207USA005281

PATIENT
  Age: 53 Year
  Sex: Male
  Weight: 95.7 kg

DRUGS (5)
  1. VICTRELIS [Suspect]
     Indication: HEPATITIS C
     Route: 048
     Dates: start: 20120323
  2. PEGASYS [Suspect]
     Indication: HEPATITIS C
     Dates: start: 20120323
  3. RIBASPHERE [Suspect]
     Indication: HEPATITIS C
     Route: 048
     Dates: start: 20120323
  4. LISINOPRIL (LISINOPRIL) [Concomitant]
  5. PRILOSEC [Concomitant]

REACTIONS (2)
  - Anaemia [None]
  - Fatigue [None]
